FAERS Safety Report 9606462 (Version 1)
Quarter: 2013Q4

REPORT INFORMATION
  Report Type: Spontaneous
  Country: US (occurrence: US)
  Receive Date: 20131008
  Receipt Date: 20131008
  Transmission Date: 20140711
  Serious: No
  Sender: FDA-Public Use
  Company Number: US-AMGEN-USASP2013055209

PATIENT
  Age: 89 Year
  Sex: Female

DRUGS (5)
  1. PROLIA [Suspect]
     Indication: OSTEOPOROSIS
     Dosage: UNK
     Route: 065
     Dates: start: 201302
  2. ATENOLOL [Concomitant]
  3. ZETIA [Concomitant]
  4. VITAMIN D                          /00107901/ [Concomitant]
  5. MULTIVITAMINS [Concomitant]

REACTIONS (5)
  - Intervertebral disc protrusion [Unknown]
  - Intervertebral disc compression [Unknown]
  - Dental caries [Unknown]
  - Parathyroid disorder [Unknown]
  - Arthralgia [Unknown]
